FAERS Safety Report 17081655 (Version 1)
Quarter: 2019Q4

REPORT INFORMATION
  Report Type: Spontaneous
  Country: US (occurrence: US)
  Receive Date: 20191030
  Receipt Date: 20191030
  Transmission Date: 20200122
  Serious: No
  Sender: FDA-Public Use
  Company Number: None

PATIENT
  Age: 56 Year
  Sex: Female

DRUGS (1)
  1. TECFIDERA [Suspect]
     Active Substance: DIMETHYL FUMARATE
     Indication: MULTIPLE SCLEROSIS
     Dosage: ?          OTHER DOSE:120MG/240MG;OTHER FREQUENCY:STARTED PACK;?
     Route: 048
     Dates: start: 20191022

REACTIONS (5)
  - Influenza like illness [None]
  - Nausea [None]
  - Oropharyngeal pain [None]
  - Flushing [None]
  - Rhinorrhoea [None]

NARRATIVE: CASE EVENT DATE: 20191022
